FAERS Safety Report 21628467 (Version 2)
Quarter: 2023Q1

REPORT INFORMATION
  Report Type: Report from Study
  Country: DE (occurrence: DE)
  Receive Date: 20221122
  Receipt Date: 20230328
  Transmission Date: 20230417
  Serious: Yes (Life-Threatening, Hospitalization, Other)
  Sender: FDA-Public Use
  Company Number: DE-GLAXOSMITHKLINE-DE2022GSK171449

PATIENT

DRUGS (12)
  1. LAMOTRIGINE [Interacting]
     Active Substance: LAMOTRIGINE
     Indication: Disability
     Dosage: UNK
  2. LAMOTRIGINE [Interacting]
     Active Substance: LAMOTRIGINE
     Indication: Mental disorder
  3. LAMOTRIGINE [Interacting]
     Active Substance: LAMOTRIGINE
     Indication: Intellectual disability
  4. TIAPRIDE [Interacting]
     Active Substance: TIAPRIDE
     Indication: Disability
     Dosage: UNK
  5. TIAPRIDE [Interacting]
     Active Substance: TIAPRIDE
     Indication: Mental disorder
  6. TIAPRIDE [Interacting]
     Active Substance: TIAPRIDE
     Indication: Intellectual disability
  7. ZUCLOPENTHIXOL [Interacting]
     Active Substance: ZUCLOPENTHIXOL
     Indication: Disability
     Dosage: UNK
  8. ZUCLOPENTHIXOL [Interacting]
     Active Substance: ZUCLOPENTHIXOL
     Indication: Mental disorder
  9. ZUCLOPENTHIXOL [Interacting]
     Active Substance: ZUCLOPENTHIXOL
     Indication: Intellectual disability
  10. MELPERONE [Interacting]
     Active Substance: MELPERONE
     Indication: Disability
     Dosage: UNK
  11. MELPERONE [Interacting]
     Active Substance: MELPERONE
     Indication: Mental disorder
  12. MELPERONE [Interacting]
     Active Substance: MELPERONE
     Indication: Intellectual disability

REACTIONS (4)
  - Full blood count abnormal [Unknown]
  - Aplastic anaemia [Unknown]
  - Drug interaction [Unknown]
  - Off label use [Unknown]
